FAERS Safety Report 6617806-0 (Version None)
Quarter: 2010Q1

REPORT INFORMATION
  Report Type: 
  Country: None (occurrence: None)
  Receive Date: 20100308
  Receipt Date: 20100303
  Transmission Date: 20100710
  Serious: Yes (Life-Threatening)
  Sender: FDA-Public Use
  Company Number: JP-SANOFI-AVENTIS-200710624JP

PATIENT
  Age: 73 Year
  Sex: Male
  Weight: 73 kg

DRUGS (7)
  1. LEFLUNOMIDE [Suspect]
     Indication: RHEUMATOID ARTHRITIS
     Route: 048
     Dates: start: 20060727
  2. MOBIC [Concomitant]
     Indication: RHEUMATOID ARTHRITIS
     Dosage: DOSE UNIT: 10 MG
     Route: 048
     Dates: start: 20060831, end: 20060927
  3. PROMAC /JPN/ [Concomitant]
     Indication: DRUG TOXICITY PROPHYLAXIS
     Dosage: DOSE UNIT: 1 G
     Route: 048
     Dates: start: 20060831
  4. OMEPRAZOLE [Concomitant]
     Indication: DRUG TOXICITY PROPHYLAXIS
     Route: 048
  5. PREDONINE [Concomitant]
     Indication: RHEUMATOID ARTHRITIS
     Dosage: DOSE AS USED: 1/2 TABLETS DOSE UNIT: 5 MG
     Route: 048
  6. HYPEN [Concomitant]
     Indication: RHEUMATOID ARTHRITIS
     Route: 048
     Dates: end: 20060830
  7. GASTER D [Concomitant]
     Indication: DRUG TOXICITY PROPHYLAXIS
     Route: 048
     Dates: end: 20060830

REACTIONS (3)
  - BLADDER CANCER RECURRENT [None]
  - PRURITUS [None]
  - STOMATITIS [None]
